FAERS Safety Report 16271065 (Version 1)
Quarter: 2019Q2

REPORT INFORMATION
  Report Type: Spontaneous
  Country: US (occurrence: US)
  Receive Date: 20190401
  Receipt Date: 20190401
  Transmission Date: 20190711
  Serious: Yes (Other)
  Sender: FDA-Public Use
  Company Number: None

PATIENT
  Age: 66 Year
  Sex: Female
  Weight: 64.86 kg

DRUGS (10)
  1. AIMOVIG [Suspect]
     Active Substance: ERENUMAB-AOOE
     Indication: MIGRAINE
     Dosage: BEGINNING OF MONTH?
     Route: 058
  2. TYLENOL [Concomitant]
     Active Substance: ACETAMINOPHEN
  3. ALBUTEROL. [Concomitant]
     Active Substance: ALBUTEROL
  4. CALCIUM CARBONATE (TUMS) [Concomitant]
  5. BECLOMETHASONE (QVAR) [Concomitant]
  6. ASPIRIN/SOD BICARB/CITIRIC ACID (ALKA-SELTZER) [Concomitant]
  7. DICLOFENAC (VOLTAREN) [Concomitant]
  8. KLONOPIN [Concomitant]
     Active Substance: CLONAZEPAM
  9. DIVALPROEX (DEPAKOTE) [Concomitant]
  10. NARATRIPTAN (AMERGE) [Concomitant]

REACTIONS (1)
  - Granuloma annulare [None]

NARRATIVE: CASE EVENT DATE: 20190301
